FAERS Safety Report 12540990 (Version 1)
Quarter: 2016Q3

REPORT INFORMATION
  Report Type: Report from Study
  Country: JP (occurrence: JP)
  Receive Date: 20160708
  Receipt Date: 20160708
  Transmission Date: 20161109
  Serious: Yes (Death, Hospitalization)
  Sender: FDA-Public Use
  Company Number: JP-SA-2016SA124280

PATIENT
  Age: 62 Year
  Sex: Female
  Weight: 56 kg

DRUGS (32)
  1. PLAVIX [Suspect]
     Active Substance: CLOPIDOGREL BISULFATE
     Indication: CEREBROVASCULAR ACCIDENT
     Route: 065
     Dates: start: 20130118, end: 20140312
  2. NAOTAMIN [Concomitant]
     Active Substance: NAFAMOSTAT
     Dosage: STRENGTH:10
     Dates: start: 20140313, end: 20140316
  3. YODEL [Concomitant]
     Active Substance: SENNA LEAF
     Dates: start: 20130531
  4. XYLOCAINE [Concomitant]
     Active Substance: LIDOCAINE HYDROCHLORIDE
     Indication: DENTAL CARE
     Dates: start: 20130409, end: 20130409
  5. CRESTOR [Concomitant]
     Active Substance: ROSUVASTATIN CALCIUM
     Dosage: STRENGTH: 2.5 MG
     Dates: start: 20140312
  6. LANDSEN [Concomitant]
     Active Substance: CLONAZEPAM
     Dosage: STRENGTH:0.5 MG
     Dates: start: 20130404, end: 20140213
  7. BLOPRESS [Concomitant]
     Active Substance: CANDESARTAN CILEXETIL
     Dates: start: 20140214, end: 20140312
  8. MIRACLID [Concomitant]
     Active Substance: ULINASTATIN
     Dosage: INJECTION SOLUTION 100,000 UNITS
     Dates: start: 20140319, end: 20140320
  9. PLETAAL [Concomitant]
     Active Substance: CILOSTAZOL
     Route: 048
     Dates: start: 20140330
  10. NAOTAMIN [Concomitant]
     Active Substance: NAFAMOSTAT
     Dosage: STRENGTH: 50
     Dates: start: 20140327, end: 20140328
  11. MAGLAX [Concomitant]
     Active Substance: MAGNESIUM OXIDE
     Dates: start: 20130511, end: 20130511
  12. LOXONIN [Concomitant]
     Active Substance: LOXOPROFEN SODIUM
     Dosage: STRENGHT: 60 MG
     Dates: start: 20130520
  13. PLETAAL [Concomitant]
     Active Substance: CILOSTAZOL
     Route: 048
     Dates: start: 20140328, end: 20160328
  14. URSO [Concomitant]
     Active Substance: URSODIOL
     Dosage: STRENGTH:100 MG
     Dates: start: 20140320
  15. CHICHINA [Concomitant]
     Dosage: INTRAVENOUS INJECTION
     Dates: start: 20140313, end: 20140321
  16. PLETAAL [Concomitant]
     Active Substance: CILOSTAZOL
     Route: 048
     Dates: start: 20140319, end: 20140325
  17. NAOTAMIN [Concomitant]
     Active Substance: NAFAMOSTAT
     Dosage: STRENGTH: 50
     Dates: start: 20140318, end: 20140321
  18. TSUMURA DAIKENCHUTO EXTRACT GRANULES [Concomitant]
     Active Substance: HERBALS
     Dates: start: 20140312
  19. OMEPRAL [Concomitant]
     Active Substance: OMEPRAZOLE
     Dates: start: 20140319, end: 20140320
  20. CHICHINA [Concomitant]
     Dates: start: 20140327, end: 20140329
  21. NOVO HEPARIN [Concomitant]
     Active Substance: HEPARIN SODIUM
     Dosage: STRENGTH:5000 UNITS/5 ML
     Dates: start: 20140317, end: 20140318
  22. RIVOTRIL [Concomitant]
     Active Substance: CLONAZEPAM
     Dosage: STRENGT: 0.5 MG
     Dates: start: 20130403
  23. PLETAAL [Concomitant]
     Active Substance: CILOSTAZOL
     Route: 048
     Dates: start: 20140313, end: 20140316
  24. NOVO HEPARIN [Concomitant]
     Active Substance: HEPARIN SODIUM
     Dosage: STRENGTH:5000 UNITS/5 ML
     Dates: start: 20140326, end: 20140327
  25. TAKEPRON [Concomitant]
     Active Substance: LANSOPRAZOLE
     Dosage: STRENGTH: 15
     Route: 048
     Dates: start: 20140312
  26. PL COMBINATION GRANULE [Concomitant]
     Dates: start: 20131231, end: 20131231
  27. CEFOTIAM HYDROCHLORIDE [Concomitant]
     Active Substance: CEFOTIAM HYDROCHLORIDE
     Route: 042
     Dates: start: 20140318, end: 20140324
  28. NOVO HEPARIN [Concomitant]
     Active Substance: HEPARIN SODIUM
     Dosage: STRENGTH:5000 UNITS/5 ML
     Dates: start: 20140329, end: 20140329
  29. FLOMAX [Concomitant]
     Active Substance: TAMSULOSIN HYDROCHLORIDE
     Dosage: STRENGTH: 100 MG
     Dates: start: 20130409, end: 20130414
  30. AZILVA [Concomitant]
     Active Substance: AZILSARTAN KAMEDOXOMIL
     Dosage: STRENGTH: 20 MG
     Dates: start: 20130705, end: 20140213
  31. CEFOTIAM HYDROCHLORIDE [Concomitant]
     Active Substance: CEFOTIAM HYDROCHLORIDE
     Route: 042
     Dates: start: 20140313, end: 20140314
  32. HEPAFLUSH [Concomitant]
     Active Substance: HEPARIN SODIUM
     Dosage: HEPAFLUSH 100 UNITS/ML SYRINGE 10 ML 1000 UNITS
     Dates: start: 20140314, end: 20140329

REACTIONS (2)
  - Haemorrhage [Recovered/Resolved]
  - Cholangiocarcinoma [Fatal]

NARRATIVE: CASE EVENT DATE: 20140213
